FAERS Safety Report 8342930-4 (Version None)
Quarter: 2012Q2

REPORT INFORMATION
  Report Type: 
  Country: None (occurrence: None)
  Receive Date: 20120508
  Receipt Date: 20120427
  Transmission Date: 20120825
  Serious: Yes (Other)
  Sender: FDA-Public Use
  Company Number: CA-JNJFOC-20120406035

PATIENT
  Sex: Male
  Weight: 63 kg

DRUGS (1)
  1. REMICADE [Suspect]
     Indication: CROHN'S DISEASE
     Dosage: 650 MG ONCE EVERY 5-6 WEEKS
     Route: 042
     Dates: start: 20110601

REACTIONS (1)
  - COLECTOMY [None]
